FAERS Safety Report 7620204-4 (Version None)
Quarter: 2011Q3

REPORT INFORMATION
  Report Type: 
  Country: None (occurrence: None)
  Receive Date: 20110719
  Receipt Date: 20110705
  Transmission Date: 20111222
  Serious: Yes (Other)
  Sender: FDA-Public Use
  Company Number: PHHY2011US59899

PATIENT
  Sex: Male

DRUGS (2)
  1. METOPROLOL TARTRATE [Concomitant]
  2. RECLAST [Suspect]
     Route: 042
     Dates: start: 20110318

REACTIONS (9)
  - CARDIAC VALVE DISEASE [None]
  - MUSCLE DISORDER [None]
  - GINGIVAL PAIN [None]
  - BONE PAIN [None]
  - GAIT DISTURBANCE [None]
  - PAIN IN JAW [None]
  - TOOTHACHE [None]
  - BACK PAIN [None]
  - PAIN IN EXTREMITY [None]
